FAERS Safety Report 25134550 (Version 1)
Quarter: 2025Q1

REPORT INFORMATION
  Report Type: Spontaneous
  Country: CN (occurrence: CN)
  Receive Date: 20250328
  Receipt Date: 20250328
  Transmission Date: 20250408
  Serious: Yes (Other)
  Sender: OXFORD PHARMACEUTICALS, LLC
  Company Number: CN-Oxford Pharmaceuticals, LLC-2173822

PATIENT
  Age: 60 Year
  Sex: Female

DRUGS (4)
  1. BACLOFEN [Suspect]
     Active Substance: BACLOFEN
     Indication: Muscle spasms
  2. CITALOPRAM [Suspect]
     Active Substance: CITALOPRAM
  3. CLONAZEPAM [Suspect]
     Active Substance: CLONAZEPAM
  4. OXCARBAZEPINE [Suspect]
     Active Substance: OXCARBAZEPINE

REACTIONS (1)
  - Central sleep apnoea syndrome [Recovered/Resolved]
